FAERS Safety Report 17520841 (Version 1)
Quarter: 2020Q1

REPORT INFORMATION
  Report Type: Spontaneous
  Country: US (occurrence: US)
  Receive Date: 20200309
  Receipt Date: 20200309
  Transmission Date: 20200409
  Serious: No
  Sender: FDA-Public Use
  Company Number: US-TEIKOKU PHARMA USA-TPU2020-00092

PATIENT
  Sex: Male
  Weight: 81.72 kg

DRUGS (2)
  1. LIDOCAINE PATCH [Suspect]
     Active Substance: LIDOCAINE
     Indication: BACK PAIN
     Dosage: 1 PATCH FOR KNEE PAIN FOR 12 HRS THEN 1 PATCH FOR BACK PAIN RIGHT AFTER FOR 12 HOURS.
     Dates: start: 2019
  2. LIDOCAINE PATCH [Suspect]
     Active Substance: LIDOCAINE
     Indication: ARTHRALGIA

REACTIONS (1)
  - Product prescribing issue [Unknown]
